FAERS Safety Report 19691347 (Version 1)
Quarter: 2021Q3

REPORT INFORMATION
  Report Type: Spontaneous
  Country: US (occurrence: US)
  Receive Date: 20210812
  Receipt Date: 20210812
  Transmission Date: 20211014
  Serious: Yes (Disabling)
  Sender: FDA-Public Use
  Company Number: None

PATIENT
  Sex: Female
  Weight: 121.5 kg

DRUGS (14)
  1. VITAMIN D3 [Concomitant]
     Active Substance: CHOLECALCIFEROL
  2. BIOTIN [Concomitant]
     Active Substance: BIOTIN
  3. GABAPENTIN. [Concomitant]
     Active Substance: GABAPENTIN
  4. CALCIUM [Concomitant]
     Active Substance: CALCIUM
  5. GABAPENTIN CAP 300 MG [Suspect]
     Active Substance: GABAPENTIN
     Indication: DIABETIC NEUROPATHY
     Dosage: ?          QUANTITY:1 CAPSULE(S);?
     Route: 048
     Dates: end: 20210805
  6. GLIMEPIRIDE. [Concomitant]
     Active Substance: GLIMEPIRIDE
  7. ALBUTEROL. [Concomitant]
     Active Substance: ALBUTEROL
  8. FORMAN [Concomitant]
  9. LEVOTHYROXINE. [Concomitant]
     Active Substance: LEVOTHYROXINE
  10. VITAMIN B12 [Concomitant]
     Active Substance: CYANOCOBALAMIN
  11. CITRUCEL [Concomitant]
     Active Substance: METHYLCELLULOSE (4000 MPA.S)
  12. METOPROLOL. [Concomitant]
     Active Substance: METOPROLOL
  13. LISINOPRIL. [Concomitant]
     Active Substance: LISINOPRIL
  14. PRAVASTATIN SOD [Concomitant]
     Active Substance: PRAVASTATIN SODIUM

REACTIONS (3)
  - Dizziness [None]
  - Lipoma [None]
  - Dyspnoea [None]
